FAERS Safety Report 8570873-X (Version None)
Quarter: 2012Q3

REPORT INFORMATION
  Report Type: 
  Country: None (occurrence: None)
  Receive Date: 20120806
  Receipt Date: 20120726
  Transmission Date: 20120928
  Serious: Yes (Hospitalization, Other)
  Sender: FDA-Public Use
  Company Number: US-BIOGENIDEC-2012BI014960

PATIENT
  Age: 45 Year
  Sex: Female

DRUGS (3)
  1. AVONEX [Suspect]
     Indication: MULTIPLE SCLEROSIS
     Route: 030
     Dates: start: 20020515
  2. AVONEX [Suspect]
     Route: 030
  3. AVONEX [Suspect]
     Route: 030

REACTIONS (10)
  - INFLUENZA LIKE ILLNESS [None]
  - MYOCARDIAL INFARCTION [None]
  - EYE MOVEMENT DISORDER [None]
  - CONVULSION [None]
  - ANKLE FRACTURE [None]
  - DIABETIC COMA [None]
  - FALL [None]
  - LIVER DISORDER [None]
  - RED BLOOD CELL MORPHOLOGY NORMAL [None]
  - LACERATION [None]
